FAERS Safety Report 7480321-9 (Version None)
Quarter: 2011Q2

REPORT INFORMATION
  Report Type: 
  Country: None (occurrence: None)
  Receive Date: 20110512
  Receipt Date: 20110512
  Transmission Date: 20111010
  Serious: Yes (Hospitalization)
  Sender: FDA-Public Use
  Company Number: None

PATIENT
  Sex: Male
  Weight: 47.73 kg

DRUGS (5)
  1. LEUCOVORIN CALCIUM [Suspect]
     Dosage: 636 MG
  2. BEVACIZUMAB (RHUMAB VEGF) [Suspect]
     Dosage: 266 MG
  3. VICODIN [Concomitant]
  4. FLUOROURACIL [Suspect]
     Dosage: 4452 MG
  5. OXALIPLATIN (ELOXATIN) [Suspect]
     Dosage: 135 MG

REACTIONS (13)
  - WHITE BLOOD CELL COUNT DECREASED [None]
  - BILIARY DILATATION [None]
  - ALANINE AMINOTRANSFERASE INCREASED [None]
  - URETERIC OBSTRUCTION [None]
  - BLOOD ALKALINE PHOSPHATASE INCREASED [None]
  - CHROMATURIA [None]
  - ASTHENIA [None]
  - WEIGHT DECREASED [None]
  - ASPARTATE AMINOTRANSFERASE INCREASED [None]
  - BLOOD BILIRUBIN INCREASED [None]
  - HYDROURETER [None]
  - JAUNDICE CHOLESTATIC [None]
  - HAEMOGLOBIN DECREASED [None]
